FAERS Safety Report 17963175 (Version 1)
Quarter: 2020Q2

REPORT INFORMATION
  Report Type: Report from Study
  Country: MY (occurrence: MY)
  Receive Date: 20200630
  Receipt Date: 20200630
  Transmission Date: 20200714
  Serious: Yes (Death)
  Sender: FDA-Public Use
  Company Number: NVSC2020MY183073

PATIENT
  Sex: Male

DRUGS (1)
  1. GLIVEC [Suspect]
     Active Substance: IMATINIB MESYLATE
     Indication: CHRONIC MYELOID LEUKAEMIA
     Dosage: 600 MG (ORIGINAL APPROVAL DATE 24 JUN 2020)
     Route: 065

REACTIONS (1)
  - Death [Fatal]
